FAERS Safety Report 8501987-8 (Version None)
Quarter: 2012Q2

REPORT INFORMATION
  Report Type: 
  Country: None (occurrence: None)
  Receive Date: 20120405
  Receipt Date: 20100816
  Transmission Date: 20120825
  Serious: Yes (Disabling)
  Sender: FDA-Public Use
  Company Number: PHHY2010US50473

PATIENT
  Age: 43 Year
  Sex: Female

DRUGS (9)
  1. RECLAST [Suspect]
     Dosage: IV INFUSION
     Route: 042
     Dates: start: 20100624
  2. IMURAN [Concomitant]
  3. PREDNISONE [Concomitant]
  4. NORVASC [Concomitant]
  5. METHOTREXATE [Concomitant]
  6. PLAQUENIL [Concomitant]
  7. FOLIC ACID [Concomitant]
  8. LYRICA [Concomitant]
  9. ESTRIN (ESTRADIOL) [Concomitant]

REACTIONS (4)
  - MYALGIA [None]
  - PYREXIA [None]
  - MUSCLE SPASMS [None]
  - PARAESTHESIA [None]
